FAERS Safety Report 6506896-1 (Version None)
Quarter: 2009Q4

REPORT INFORMATION
  Report Type: 
  Country: None (occurrence: None)
  Receive Date: 20091216
  Receipt Date: 20091203
  Transmission Date: 20100525
  Serious: Yes (Other)
  Sender: FDA-Public Use
  Company Number: 340016K09USA

PATIENT
  Age: 33 Year
  Sex: Female

DRUGS (2)
  1. OVIDREL [Suspect]
     Indication: INFERTILITY FEMALE
     Dates: start: 20080601
  2. FOLLISTIM [Suspect]
     Indication: INFERTILITY
     Dates: start: 20081001, end: 20081101

REACTIONS (4)
  - ABORTION SPONTANEOUS [None]
  - DRUG EXPOSURE DURING PREGNANCY [None]
  - INTRA-UTERINE DEATH [None]
  - RETAINED PLACENTA OR MEMBRANES [None]
